FAERS Safety Report 14349586 (Version 1)
Quarter: 2018Q1

REPORT INFORMATION
  Report Type: Spontaneous
  Country: GB (occurrence: GB)
  Receive Date: 20180104
  Receipt Date: 20180104
  Transmission Date: 20180509
  Serious: Yes (Other)
  Sender: FDA-Public Use
  Company Number: GB-ABBVIE-18S-167-2210502-00

PATIENT
  Age: 32 Year
  Sex: Male
  Weight: 57 kg

DRUGS (3)
  1. CLARITHROMYCIN. [Suspect]
     Active Substance: CLARITHROMYCIN
     Indication: TONSILLITIS
     Dosage: COMPLETED DAY 3 OF 5 WHEN REPORTING
     Route: 048
     Dates: start: 20171205
  2. PHENOXYMETHYLPENICILLIN POTASSIUM [Concomitant]
     Active Substance: PENICILLIN V POTASSIUM
     Indication: PRODUCT USED FOR UNKNOWN INDICATION
     Dosage: UNK
  3. AMOXICILLIN. [Concomitant]
     Active Substance: AMOXICILLIN
     Indication: PRODUCT USED FOR UNKNOWN INDICATION

REACTIONS (13)
  - Condition aggravated [Unknown]
  - Dyspepsia [Unknown]
  - Dry mouth [Unknown]
  - Heart rate increased [Unknown]
  - Anal haemorrhage [Unknown]
  - Fatigue [Unknown]
  - Somnolence [Unknown]
  - Aphonia [Unknown]
  - Decreased appetite [Unknown]
  - Acne [Unknown]
  - Malaise [Unknown]
  - Parosmia [Unknown]
  - Insomnia [Unknown]

NARRATIVE: CASE EVENT DATE: 20171205
